FAERS Safety Report 8957083 (Version 1)
Quarter: 2012Q4

REPORT INFORMATION
  Report Type: 
  Country: US (occurrence: US)
  Receive Date: 20121211
  Receipt Date: 20121211
  Transmission Date: 20130627
  Serious: No
  Sender: FDA-Public Use
  Company Number: US-009507513-1212USA002983

PATIENT
  Age: 24 Year
  Sex: Female
  Weight: 77.98 kg

DRUGS (6)
  1. VICTRELIS [Suspect]
     Dosage: 4 DF, q8h
     Route: 048
  2. RIBAVIRIN [Suspect]
  3. PEGASYS [Suspect]
     Dosage: Strength: 180 MCG/M
  4. PROZAC [Concomitant]
  5. BENADRYL [Concomitant]
  6. [THERAPY UNSPECIFIED] [Concomitant]
     Indication: ACNE

REACTIONS (5)
  - Dyspnoea [Unknown]
  - Fatigue [Unknown]
  - Dysgeusia [Unknown]
  - Nausea [Unknown]
  - Dry skin [Unknown]
